FAERS Safety Report 19362946 (Version 1)
Quarter: 2021Q2

REPORT INFORMATION
  Report Type: Other
  Country: BG (occurrence: BG)
  Receive Date: 20210603
  Receipt Date: 20210603
  Transmission Date: 20210717
  Serious: Yes (Hospitalization)
  Sender: FDA-Public Use
  Company Number: BG-CELLTRION INC.-2021BG007332

PATIENT

DRUGS (7)
  1. PROPRANOLOL [Concomitant]
     Active Substance: PROPRANOLOL HYDROCHLORIDE
     Indication: TREMOR
     Dosage: UNK (ONGOING = CHECKED)
     Dates: start: 20201002
  2. AERIUS [Concomitant]
     Indication: NEURODERMATITIS
     Dosage: UNK (ONGOING = CHECKED)
     Dates: start: 20200328
  3. TRASTUZUMAB (UNKNOWN) [Suspect]
     Active Substance: TRASTUZUMAB
     Indication: BREAST CANCER
     Dosage: 450 MG, EVERY 3 WEEKS (MOST RECENT DOSE PRIOR TO THE EVENT: 29/NOV/2018)
     Route: 042
     Dates: start: 20181102, end: 20181102
  4. CLOBEDERM [Concomitant]
     Indication: NEURODERMATITIS
     Dosage: UNK (ONGOING = CHECKED)
     Dates: start: 20200328
  5. DOCETAXEL. [Suspect]
     Active Substance: DOCETAXEL
     Indication: BREAST CANCER
     Dosage: 132.7 MG, EVERY 3 WEEKS (MOST RECENT DOSE PRIOR TO THE EVENT: 29/NOV/2018, 04/OCT/2019)
     Route: 042
     Dates: start: 20181102
  6. ATARAX [Concomitant]
     Active Substance: HYDROXYZINE HYDROCHLORIDE
     Indication: NEURODERMATITIS
     Dosage: UNK (ONGOING = CHECKED)
     Dates: start: 20200310
  7. BERLIPRIL [Concomitant]
     Active Substance: ENALAPRIL MALEATE
     Dosage: UNK (ONGOING = CHECKED)
     Dates: start: 20120615

REACTIONS (1)
  - Femoral neck fracture [Recovering/Resolving]

NARRATIVE: CASE EVENT DATE: 20201227
